FAERS Safety Report 10275899 (Version 1)
Quarter: 2014Q3

REPORT INFORMATION
  Report Type: Spontaneous
  Country: US (occurrence: None)
  Receive Date: 20140701
  Receipt Date: 20140701
  Transmission Date: 20150326
  Serious: Yes (Other)
  Sender: FDA-Public Use
  Company Number: 20140348

PATIENT
  Age: 62 Year
  Sex: Female

DRUGS (1)
  1. METHYLENE BLUE INJECTION 1% [Suspect]
     Active Substance: METHYLENE BLUE
     Indication: LYMPHATIC MAPPING

REACTIONS (1)
  - Anaphylactic reaction [None]
